FAERS Safety Report 6449345-4 (Version None)
Quarter: 2009Q4

REPORT INFORMATION
  Report Type: 
  Country: None (occurrence: None)
  Receive Date: 20091120
  Receipt Date: 20091109
  Transmission Date: 20100525
  Serious: Yes (Other)
  Sender: FDA-Public Use
  Company Number: US-ELI_LILLY_AND_COMPANY-US200911002237

PATIENT
  Sex: Female

DRUGS (7)
  1. EVISTA [Suspect]
     Dosage: UNK, UNKNOWN
     Route: 065
  2. FOSAMAX [Concomitant]
     Dosage: UNK, UNKNOWN
     Route: 065
  3. ADVAIR DISKUS 100/50 [Concomitant]
     Dosage: UNK, UNKNOWN
     Route: 065
  4. NASONEX [Concomitant]
     Dosage: UNK, UNKNOWN
     Route: 065
  5. IRON [Concomitant]
     Dosage: UNK, UNKNOWN
     Route: 065
  6. MULTI-VITAMIN [Concomitant]
     Dosage: UNK, UNKNOWN
     Route: 065
  7. CALCIUM CITRATE W/VITAMIN D NOS [Concomitant]
     Dosage: UNK, UNKNOWN
     Route: 065

REACTIONS (3)
  - LUNG NEOPLASM MALIGNANT [None]
  - PIGMENTATION DISORDER [None]
  - THERAPEUTIC RESPONSE DECREASED [None]
